FAERS Safety Report 7515531-5 (Version None)
Quarter: 2011Q2

REPORT INFORMATION
  Report Type: 
  Country: None (occurrence: None)
  Receive Date: 20110601
  Receipt Date: 20100708
  Transmission Date: 20111010
  Serious: No
  Sender: FDA-Public Use
  Company Number: US-PFIZER INC-2010085832

PATIENT
  Age: 50 Year
  Sex: Male
  Weight: 117 kg

DRUGS (9)
  1. CRESTOR [Concomitant]
     Indication: BLOOD CHOLESTEROL
     Dosage: UNK
  2. METFORMIN [Concomitant]
     Dosage: UNK
  3. CHANTIX [Suspect]
     Indication: SMOKING CESSATION THERAPY
     Dates: start: 20100501, end: 20100501
  4. PLAVIX [Concomitant]
     Indication: MYOCARDIAL INFARCTION
     Dosage: UNK
  5. FISH OIL [Concomitant]
     Dosage: UNK
  6. FENOFIBRATE [Concomitant]
     Indication: BLOOD TRIGLYCERIDES INCREASED
     Dosage: UNK
  7. INDAPAMIDE [Concomitant]
     Indication: GLUCOSE TOLERANCE IMPAIRED
     Dosage: UNK
  8. ACETYLSALICYLIC ACID [Concomitant]
     Dosage: UNK
  9. PLAVIX [Concomitant]
     Indication: STENT PLACEMENT

REACTIONS (2)
  - HEADACHE [None]
  - DRUG INEFFECTIVE [None]
